FAERS Safety Report 5697448-4 (Version None)
Quarter: 2008Q2

REPORT INFORMATION
  Report Type: 
  Country: None (occurrence: None)
  Receive Date: 20080407
  Receipt Date: 20080326
  Transmission Date: 20081010
  Serious: Yes (Other)
  Sender: FDA-Public Use
  Company Number: PHEH2008US03148

PATIENT
  Sex: Female

DRUGS (2)
  1. AREDIA [Suspect]
     Indication: RESORPTION BONE INCREASED
     Dosage: UNK, QMO
     Dates: start: 19990101, end: 20060101
  2. ZOMETA [Suspect]
     Indication: RESORPTION BONE INCREASED
     Dosage: UNK, QMO
     Dates: start: 19990101, end: 20060101

REACTIONS (3)
  - ANXIETY [None]
  - OSTEONECROSIS [None]
  - PAIN [None]
